FAERS Safety Report 21034630 (Version 1)
Quarter: 2022Q3

REPORT INFORMATION
  Report Type: Spontaneous
  Country: US (occurrence: None)
  Receive Date: 20220701
  Receipt Date: 20220701
  Transmission Date: 20221027
  Serious: No
  Sender: FDA-Public Use
  Company Number: None

PATIENT
  Sex: Female

DRUGS (1)
  1. RINVOQ [Suspect]
     Active Substance: UPADACITINIB
     Indication: Rheumatoid arthritis
     Dosage: 15MG DAILY BY MOUTH??FROM 08/19/2021 TO 07/05/2022
     Route: 048
     Dates: start: 20210819

REACTIONS (2)
  - Drug ineffective [None]
  - Insurance issue [None]
